FAERS Safety Report 18107736 (Version 2)
Quarter: 2020Q4

REPORT INFORMATION
  Report Type: Spontaneous
  Country: US (occurrence: US)
  Receive Date: 20200804
  Receipt Date: 20201006
  Transmission Date: 20210113
  Serious: No
  Sender: FDA-Public Use
  Company Number: US-GILEAD-2020-0487397

PATIENT
  Age: 64 Year
  Sex: Male

DRUGS (4)
  1. CALCIPOTRIENE. [Concomitant]
     Active Substance: CALCIPOTRIENE
  2. EPCLUSA [Suspect]
     Active Substance: SOFOSBUVIR\VELPATASVIR
     Indication: CHRONIC HEPATITIS C
     Dosage: 1 DOSAGE FORM, QD
     Route: 048
  3. CLOBETASOL PROPIONATE. [Concomitant]
     Active Substance: CLOBETASOL PROPIONATE
  4. CALCIPOTRIOL [Concomitant]
     Active Substance: CALCIPOTRIENE

REACTIONS (3)
  - Insomnia [Not Recovered/Not Resolved]
  - Chromaturia [Unknown]
  - Fatigue [Unknown]
